FAERS Safety Report 22930362 (Version 2)
Quarter: 2023Q4

REPORT INFORMATION
  Report Type: Spontaneous
  Country: US (occurrence: US)
  Receive Date: 20230911
  Receipt Date: 20231018
  Transmission Date: 20240110
  Serious: Yes (Death, Other)
  Sender: FDA-Public Use
  Company Number: US-Vifor (International) Inc.-VIT-2023-06658

PATIENT
  Age: 57 Year
  Sex: Female
  Weight: 86 kg

DRUGS (1)
  1. MIRCERA [Suspect]
     Active Substance: METHOXY POLYETHYLENE GLYCOL-EPOETIN BETA
     Indication: Anaemia
     Route: 040
     Dates: start: 20230710, end: 20230807

REACTIONS (8)
  - Cardiac arrest [Fatal]
  - Unresponsive to stimuli [Fatal]
  - Mouth breathing [Fatal]
  - Hypopnoea [Fatal]
  - Dyspnoea [Fatal]
  - Hypertension [Fatal]
  - Respiratory rate increased [Fatal]
  - Oedema [Unknown]

NARRATIVE: CASE EVENT DATE: 20230701
